FAERS Safety Report 8987520 (Version 3)
Quarter: 2013Q1

REPORT INFORMATION
  Report Type: Report from Study
  Country: CA (occurrence: CA)
  Receive Date: 20121227
  Receipt Date: 20130225
  Transmission Date: 20140127
  Serious: Yes (Other)
  Sender: FDA-Public Use
  Company Number: CA-ROCHE-1146056

PATIENT
  Age: 70 Year
  Sex: Male
  Weight: 82.63 kg

DRUGS (3)
  1. AVASTIN [Suspect]
     Indication: COLORECTAL CANCER
     Route: 042
     Dates: start: 20120801, end: 201301
  2. LEVOTHYROXINE [Concomitant]
  3. AMLODIPINE [Concomitant]

REACTIONS (12)
  - Disease progression [Not Recovered/Not Resolved]
  - Hypoaesthesia [Not Recovered/Not Resolved]
  - Hypoaesthesia [Not Recovered/Not Resolved]
  - Coordination abnormal [Unknown]
  - Tremor [Unknown]
  - Hypertension [Unknown]
  - Tremor [Unknown]
  - Hypoaesthesia [Unknown]
  - Headache [Unknown]
  - Nasopharyngitis [Recovering/Resolving]
  - Productive cough [Recovering/Resolving]
  - Productive cough [Recovering/Resolving]
